FAERS Safety Report 7047067-2 (Version None)
Quarter: 2010Q4

REPORT INFORMATION
  Report Type: 
  Country: None (occurrence: None)
  Receive Date: 20101015
  Receipt Date: 20101008
  Transmission Date: 20110411
  Serious: Yes (Other)
  Sender: FDA-Public Use
  Company Number: US-JNJFOC-20100300725

PATIENT
  Sex: Male

DRUGS (1)
  1. LEVAQUIN [Suspect]
     Indication: BACTERIAL INFECTION
     Route: 048

REACTIONS (3)
  - CEREBROVASCULAR ACCIDENT [None]
  - TENDON DISORDER [None]
  - TENDONITIS [None]
